FAERS Safety Report 7846644-6 (Version None)
Quarter: 2011Q4

REPORT INFORMATION
  Report Type: 
  Country: None (occurrence: None)
  Receive Date: 20111025
  Receipt Date: 20111014
  Transmission Date: 20120403
  Serious: Yes (Other)
  Sender: FDA-Public Use
  Company Number: PHFR2011GB05911

PATIENT
  Sex: Male

DRUGS (1)
  1. CLOZARIL [Suspect]
     Indication: SCHIZOPHRENIA
     Route: 048
     Dates: start: 20110622

REACTIONS (5)
  - VOMITING [None]
  - WEIGHT DECREASED [None]
  - NAUSEA [None]
  - CHOLECYSTITIS [None]
  - GASTRIC DISORDER [None]
